FAERS Safety Report 8456075-6 (Version None)
Quarter: 2012Q2

REPORT INFORMATION
  Report Type: 
  Country: None (occurrence: None)
  Receive Date: 20120621
  Receipt Date: 20120613
  Transmission Date: 20120825
  Serious: Yes (Other)
  Sender: FDA-Public Use
  Company Number: PHHY2012BR051633

PATIENT
  Sex: Female

DRUGS (2)
  1. FORMOTEROL FUMARATE [Suspect]
     Dosage: 1 DF (12 MCG FORMOTEROL AND 200 MCG BUDESONIDE), UNK
  2. AMLODIPINE [Suspect]
     Dosage: 1 DF (320 MG VALSAR AND 5 MG AMLO), UNK

REACTIONS (1)
  - COLORECTAL CANCER [None]
